FAERS Safety Report 8345268-4 (Version None)
Quarter: 2012Q2

REPORT INFORMATION
  Report Type: 
  Country: None (occurrence: None)
  Receive Date: 20120508
  Receipt Date: 20120502
  Transmission Date: 20120825
  Serious: No
  Sender: FDA-Public Use
  Company Number: US-PFIZER INC-2012097274

PATIENT
  Sex: Male

DRUGS (11)
  1. MYCOPHENOLATE MOFETIL (CELLCEPT) [Concomitant]
     Dosage: UNK
  2. CYCLOSPORINE [Concomitant]
     Dosage: UNK
  3. ATENOLOL [Concomitant]
     Dosage: UNK
  4. BACTRIM [Concomitant]
     Dosage: UNK
  5. PRAVACHOL [Concomitant]
     Dosage: UNK
  6. LASIX [Concomitant]
     Dosage: UNK
  7. PRILOSEC [Concomitant]
     Dosage: UNK
  8. LATANOPROST [Suspect]
     Indication: INTRAOCULAR PRESSURE TEST ABNORMAL
     Dosage: UNK
  9. FLONASE [Concomitant]
     Dosage: UNK
  10. CLONIDINE [Concomitant]
     Dosage: UNK
  11. NIFEDIPINE [Concomitant]
     Dosage: UNK

REACTIONS (2)
  - INTRAOCULAR PRESSURE TEST ABNORMAL [None]
  - DRUG INEFFECTIVE [None]
